FAERS Safety Report 25058828 (Version 2)
Quarter: 2025Q1

REPORT INFORMATION
  Report Type: Spontaneous
  Country: US (occurrence: US)
  Receive Date: 20250310
  Receipt Date: 20250314
  Transmission Date: 20250408
  Serious: Yes (Other)
  Sender: GE HEALTHCARE
  Company Number: US-GE HEALTHCARE-2025CSU002687

PATIENT
  Age: 72 Year

DRUGS (1)
  1. VIZAMYL [Suspect]
     Active Substance: FLUTEMETAMOL F-18
     Indication: Diagnostic procedure
     Route: 065
     Dates: start: 20250224, end: 20250224

REACTIONS (2)
  - Hyporesponsive to stimuli [Unknown]
  - Dizziness [Unknown]
